FAERS Safety Report 21735723 (Version 1)
Quarter: 2022Q4

REPORT INFORMATION
  Report Type: Spontaneous
  Country: US (occurrence: US)
  Receive Date: 20221215
  Receipt Date: 20221215
  Transmission Date: 20230112
  Serious: No
  Sender: FDA-Public Use
  Company Number: US-009507513-2211USA005315

PATIENT
  Sex: Male

DRUGS (1)
  1. INTRON A [Suspect]
     Active Substance: INTERFERON ALFA-2B
     Indication: Metastatic malignant melanoma
     Dosage: UNK
     Dates: start: 201502, end: 201503

REACTIONS (2)
  - Treatment failure [Unknown]
  - Product use issue [Unknown]

NARRATIVE: CASE EVENT DATE: 20150201
